FAERS Safety Report 4549673-3 (Version None)
Quarter: 2005Q1

REPORT INFORMATION
  Report Type: 
  Country: None (occurrence: None)
  Receive Date: 20050106
  Receipt Date: 20041224
  Transmission Date: 20050727
  Serious: Yes (Hospitalization)
  Sender: FDA-Public Use
  Company Number: J200404479

PATIENT
  Age: 79 Year
  Sex: Female

DRUGS (6)
  1. ZOLPIDEM TARTRATE [Suspect]
     Indication: INSOMNIA
     Dosage: 10 MG/5 MG
     Route: 048
     Dates: start: 20041026, end: 20041026
  2. ZOLPIDEM TARTRATE [Suspect]
     Indication: INSOMNIA
     Dosage: 10 MG/5 MG
     Route: 048
     Dates: start: 20041027
  3. (PA) NON-PYRINE PREPARATION FOR COLD SYNDROME [Suspect]
     Indication: UPPER RESPIRATORY TRACT INFLAMMATION
     Dosage: 3 TABLETS
     Route: 048
     Dates: start: 20041026, end: 20041026
  4. FAMOTIDINE [Concomitant]
  5. ALFAROL (ALFACALCIDOL) [Concomitant]
  6. MOBIC [Concomitant]

REACTIONS (4)
  - DELIRIUM [None]
  - LOSS OF CONSCIOUSNESS [None]
  - SOMNOLENCE [None]
  - TREMOR [None]
